FAERS Safety Report 16953136 (Version 3)
Quarter: 2020Q1

REPORT INFORMATION
  Report Type: Spontaneous
  Country: NL (occurrence: NL)
  Receive Date: 20191023
  Receipt Date: 20200204
  Transmission Date: 20200409
  Serious: Yes (Other)
  Sender: FDA-Public Use
  Company Number: NL-PFIZER INC-2019453422

PATIENT
  Age: 9 Year
  Sex: Female

DRUGS (12)
  1. IMIPENEM AND CILASTATIN [Suspect]
     Active Substance: CILASTATIN SODIUM\IMIPENEM
     Indication: MYCOBACTERIUM ABSCESSUS INFECTION
  2. IMIPENEM AND CILASTATIN [Suspect]
     Active Substance: CILASTATIN SODIUM\IMIPENEM
     Indication: MASTOIDITIS
  3. TIGECYCLINE. [Suspect]
     Active Substance: TIGECYCLINE
     Indication: MASTOIDITIS
     Dosage: UNK, 3X/DAY (THREE DROPS)
     Route: 061
  4. AZITHROMYCIN ANHYDROUS. [Suspect]
     Active Substance: AZITHROMYCIN ANHYDROUS
     Indication: MASTOIDITIS
     Dosage: 10 MG/KG, DAILY
     Route: 048
  5. IMIPENEM AND CILASTATIN [Suspect]
     Active Substance: CILASTATIN SODIUM\IMIPENEM
     Indication: MYCOBACTERIUM ABSCESSUS INFECTION
     Dosage: UNK, 3X/DAY (5/5 MG/ML; THREE DROPS)
     Route: 061
  6. TIGECYCLINE. [Suspect]
     Active Substance: TIGECYCLINE
     Indication: MYCOBACTERIUM ABSCESSUS INFECTION
  7. AZITHROMYCIN ANHYDROUS. [Suspect]
     Active Substance: AZITHROMYCIN ANHYDROUS
     Indication: MYCOBACTERIUM ABSCESSUS INFECTION
  8. IMIPENEM AND CILASTATIN [Suspect]
     Active Substance: CILASTATIN SODIUM\IMIPENEM
     Indication: MASTOIDITIS
     Dosage: UNK, DAILY (60/60 MG/KG/DAY IN 2-4 DOSES)
     Route: 042
  9. CLOFAZIMINE [Suspect]
     Active Substance: CLOFAZIMINE
     Indication: MASTOIDITIS
     Dosage: UNK, 1X/DAY (50MG ONCE DAILY; IF WEIGHT }40KG, THEN 100MG ONCE DAILY)
     Route: 048
  10. TIGECYCLINE. [Suspect]
     Active Substance: TIGECYCLINE
     Indication: MYCOBACTERIUM ABSCESSUS INFECTION
     Dosage: 2.4 MG/KG, DAILY (IN 2 DOSES)
     Route: 042
  11. TIGECYCLINE. [Suspect]
     Active Substance: TIGECYCLINE
     Indication: MASTOIDITIS
  12. CLOFAZIMINE [Suspect]
     Active Substance: CLOFAZIMINE
     Indication: MYCOBACTERIUM ABSCESSUS INFECTION

REACTIONS (7)
  - Product use in unapproved indication [Unknown]
  - Vomiting [Recovered/Resolved]
  - Hepatotoxicity [Unknown]
  - Nausea [Recovered/Resolved]
  - Fatigue [Unknown]
  - Off label use [Unknown]
  - Arthropathy [Unknown]
